FAERS Safety Report 10027152 (Version 2)
Quarter: 2014Q1

REPORT INFORMATION
  Report Type: Spontaneous
  Country: US (occurrence: US)
  Receive Date: 20140321
  Receipt Date: 20140321
  Transmission Date: 20141002
  Serious: No
  Sender: FDA-Public Use
  Company Number: US-MYLANLABS-2013S1022046

PATIENT
  Age: 66 Year
  Sex: Female

DRUGS (16)
  1. ESTRADIOL TRANSDERMAL SYSTEM [Suspect]
     Indication: HOT FLUSH
     Dosage: CHANGES TWICE WEEKLY
     Route: 062
     Dates: start: 20130501, end: 20130906
  2. ESTRADIOL TRANSDERMAL SYSTEM [Suspect]
     Indication: OSTEOPOROSIS PROPHYLAXIS
     Dosage: CHANGES TWICE WEEKLY
     Route: 062
     Dates: start: 20130501, end: 20130906
  3. ESTRADIOL TRANSDERMAL SYSTEM [Suspect]
     Indication: OVARIAN FAILURE
     Dosage: CHANGES TWICE WEEKLY
     Route: 062
     Dates: start: 20130501, end: 20130906
  4. ESTRADIOL TRANSDERMAL SYSTEM [Suspect]
     Indication: MENOPAUSAL SYMPTOMS
     Dosage: CHANGES TWICE WEEKLY
     Route: 062
     Dates: start: 20130501, end: 20130906
  5. ESTRADIOL TRANSDERMAL SYSTEM [Suspect]
     Indication: SLEEP DISORDER
     Dosage: CHANGES TWICE WEEKLY
     Route: 062
     Dates: start: 20130501, end: 20130906
  6. ESTRADIOL TRANSDERMAL SYSTEM [Suspect]
     Indication: OSTEOPENIA
     Dosage: CHANGES TWICE WEEKLY
     Route: 062
     Dates: start: 20130501, end: 20130906
  7. ESTRADIOL TRANSDERMAL SYSTEM, USP [Suspect]
     Indication: HOT FLUSH
     Dosage: CHANGES Q.W.
     Route: 062
     Dates: start: 20130907, end: 20130928
  8. ESTRADIOL TRANSDERMAL SYSTEM, USP [Suspect]
     Indication: OSTEOPOROSIS PROPHYLAXIS
     Dosage: CHANGES Q.W.
     Route: 062
     Dates: start: 20130907, end: 20130928
  9. ESTRADIOL TRANSDERMAL SYSTEM, USP [Suspect]
     Indication: OVARIAN FAILURE
     Dosage: CHANGES Q.W.
     Route: 062
     Dates: start: 20130907, end: 20130928
  10. ESTRADIOL TRANSDERMAL SYSTEM, USP [Suspect]
     Indication: MENOPAUSAL SYMPTOMS
     Dosage: CHANGES Q.W.
     Route: 062
     Dates: start: 20130907, end: 20130928
  11. ESTRADIOL TRANSDERMAL SYSTEM, USP [Suspect]
     Indication: SLEEP DISORDER
     Dosage: CHANGES Q.W.
     Route: 062
     Dates: start: 20130907, end: 20130928
  12. ESTRADIOL TRANSDERMAL SYSTEM, USP [Suspect]
     Indication: OSTEOPENIA
     Dosage: CHANGES Q.W.
     Route: 062
     Dates: start: 20130907, end: 20130928
  13. CITRACAL /00751520/ [Concomitant]
  14. VITAMIN D [Concomitant]
  15. CENTRUM SILVER [Concomitant]
  16. FISH OIL [Concomitant]

REACTIONS (9)
  - Cognitive disorder [Recovered/Resolved]
  - Depression [Recovered/Resolved]
  - Insomnia [Not Recovered/Not Resolved]
  - Mood swings [Recovered/Resolved]
  - Sleep disorder [Recovered/Resolved]
  - Feeling abnormal [Recovered/Resolved]
  - Feeling abnormal [Recovered/Resolved]
  - Feeling hot [Recovered/Resolved]
  - Irritability [Recovered/Resolved]
